FAERS Safety Report 12631099 (Version 2)
Quarter: 2016Q3

REPORT INFORMATION
  Report Type: Spontaneous
  Country: US (occurrence: US)
  Receive Date: 20160808
  Receipt Date: 20160808
  Transmission Date: 20161109
  Serious: No
  Sender: FDA-Public Use
  Company Number: US-BEH-2015052275

PATIENT
  Sex: Male
  Weight: 63 kg

DRUGS (43)
  1. CETIRIZINE [Concomitant]
     Active Substance: CETIRIZINE HYDROCHLORIDE
  2. NITROLINGUAL [Concomitant]
     Active Substance: NITROGLYCERIN
  3. METFORMIN [Concomitant]
     Active Substance: METFORMIN HYDROCHLORIDE
  4. MUCINEX [Concomitant]
     Active Substance: GUAIFENESIN
  5. HIZENTRA [Suspect]
     Active Substance: HUMAN IMMUNOGLOBULIN G
     Dosage: 10 GM 50 ML VIAL
     Route: 058
  6. VENTOLIN [Concomitant]
     Active Substance: ALBUTEROL SULFATE
  7. CENTRUM SILVER [Concomitant]
     Active Substance: MINERALS\VITAMINS
  8. FERROUS GLUCONATE [Concomitant]
     Active Substance: FERROUS GLUCONATE
  9. AMITRIPTYLINE [Concomitant]
     Active Substance: AMITRIPTYLINE
  10. LYRICA [Concomitant]
     Active Substance: PREGABALIN
  11. HYDROXYZINE [Concomitant]
     Active Substance: HYDROXYZINE\HYDROXYZINE HYDROCHLORIDE
  12. AMMONIUM LACTATE. [Concomitant]
     Active Substance: AMMONIUM LACTATE
  13. PREDNISONE. [Concomitant]
     Active Substance: PREDNISONE
  14. MIRALAX [Concomitant]
     Active Substance: POLYETHYLENE GLYCOL 3350
  15. TYLENOL [Concomitant]
     Active Substance: ACETAMINOPHEN
  16. HIZENTRA [Suspect]
     Active Substance: HUMAN IMMUNOGLOBULIN G
     Indication: IMMUNODEFICIENCY COMMON VARIABLE
     Dosage: 10 GM 50 ML VIAL
     Route: 058
  17. LIDOCAINE/PRILOCAINE [Concomitant]
     Active Substance: LIDOCAINE\PRILOCAINE
  18. GENTAMYCIN [Concomitant]
     Active Substance: GENTAMICIN
  19. SODIUM CHLORIDE. [Concomitant]
     Active Substance: SODIUM CHLORIDE
  20. XOLAIR [Concomitant]
     Active Substance: OMALIZUMAB
  21. NASONEX [Concomitant]
     Active Substance: MOMETASONE FUROATE
  22. FLOMAX [Concomitant]
     Active Substance: TAMSULOSIN HYDROCHLORIDE
  23. VITAMIN D3 [Concomitant]
     Active Substance: CHOLECALCIFEROL
  24. XALATAN [Concomitant]
     Active Substance: LATANOPROST
  25. SINGULAIR [Concomitant]
     Active Substance: MONTELUKAST SODIUM
  26. TRIAMCINOLONE [Concomitant]
     Active Substance: TRIAMCINOLONE
  27. PLAVIX [Concomitant]
     Active Substance: CLOPIDOGREL BISULFATE
  28. SYNTHROID [Concomitant]
     Active Substance: LEVOTHYROXINE SODIUM
  29. ERYTHROMYCIN. [Concomitant]
     Active Substance: ERYTHROMYCIN
  30. NEXIUM [Concomitant]
     Active Substance: ESOMEPRAZOLE MAGNESIUM
  31. EPIPEN [Concomitant]
     Active Substance: EPINEPHRINE
     Indication: ANAPHYLACTIC REACTION
  32. COLLAGENASE SANTYL [Concomitant]
     Active Substance: COLLAGENASE CLOSTRIDIUM HISTOLYTICUM
  33. ALBUTEROL. [Concomitant]
     Active Substance: ALBUTEROL
  34. SIMVASTATIN. [Concomitant]
     Active Substance: SIMVASTATIN
  35. FOLIC ACID. [Concomitant]
     Active Substance: FOLIC ACID
  36. CALCIUM [Concomitant]
     Active Substance: CALCIUM
  37. PROSCAR [Concomitant]
     Active Substance: FINASTERIDE
  38. TIMOLOL. [Concomitant]
     Active Substance: TIMOLOL
  39. ADVAIR HFA [Concomitant]
     Active Substance: FLUTICASONE PROPIONATE\SALMETEROL XINAFOATE
  40. ACAPELLA [Concomitant]
  41. HYDROXYCHLOROQUINE [Concomitant]
     Active Substance: HYDROXYCHLOROQUINE
  42. QVAR [Concomitant]
     Active Substance: BECLOMETHASONE DIPROPIONATE
  43. DIPHENHYDRAMINE. [Concomitant]
     Active Substance: DIPHENHYDRAMINE
     Indication: ANAPHYLACTIC REACTION

REACTIONS (3)
  - Infusion site mass [Unknown]
  - Malabsorption from administration site [Unknown]
  - Unevaluable event [Recovering/Resolving]
